FAERS Safety Report 6422420-6 (Version None)
Quarter: 2009Q4

REPORT INFORMATION
  Report Type: 
  Country: None (occurrence: None)
  Receive Date: 20091030
  Receipt Date: 20091020
  Transmission Date: 20100525
  Serious: Yes (Other)
  Sender: FDA-Public Use
  Company Number: GB-GENENTECH-290574

PATIENT
  Sex: Male

DRUGS (1)
  1. MABTHERA [Suspect]
     Indication: PALINDROMIC RHEUMATISM
     Route: 065

REACTIONS (3)
  - DYSPNOEA [None]
  - JOINT SWELLING [None]
  - LUNG DISORDER [None]
